FAERS Safety Report 6277848-4 (Version None)
Quarter: 2009Q3

REPORT INFORMATION
  Report Type: 
  Country: None (occurrence: None)
  Receive Date: 20090717
  Receipt Date: 20090717
  Transmission Date: 20100115
  Serious: Yes (Other)
  Sender: FDA-Public Use
  Company Number: None

PATIENT
  Sex: Male
  Weight: 81.6475 kg

DRUGS (1)
  1. PROVIGIL [Suspect]
     Indication: SOMNOLENCE
     Dosage: 100 MG QAM PO
     Route: 048
     Dates: start: 20090611, end: 20090709

REACTIONS (5)
  - COMPULSIONS [None]
  - DEPRESSED MOOD [None]
  - OBSESSIVE THOUGHTS [None]
  - SOCIAL AVOIDANT BEHAVIOUR [None]
  - THOUGHT BLOCKING [None]
